FAERS Safety Report 7903156-9 (Version None)
Quarter: 2011Q4

REPORT INFORMATION
  Report Type: 
  Country: None (occurrence: None)
  Receive Date: 20111109
  Receipt Date: 20110719
  Transmission Date: 20120403
  Serious: No
  Sender: FDA-Public Use
  Company Number: US-GLAXOSMITHKLINE-A0937330A

PATIENT
  Sex: Male

DRUGS (1)
  1. HYCAMTIN [Suspect]
     Indication: SMALL CELL LUNG CANCER STAGE UNSPECIFIED

REACTIONS (1)
  - OVERDOSE [None]
